FAERS Safety Report 17882118 (Version 1)
Quarter: 2020Q2

REPORT INFORMATION
  Report Type: Spontaneous
  Country: DE (occurrence: DE)
  Receive Date: 20200610
  Receipt Date: 20200610
  Transmission Date: 20200714
  Serious: Yes (Other)
  Sender: FDA-Public Use
  Company Number: NVSC2020DE160907

PATIENT
  Sex: Female
  Weight: 60 kg

DRUGS (10)
  1. OXALIPLATIN. [Suspect]
     Active Substance: OXALIPLATIN
     Indication: DIFFUSE LARGE B-CELL LYMPHOMA
     Dosage: 2ND LINE THERAPY, ACCORDING TO DHOX-RITUXIMAB REGIMEN, 2 CYCLES
     Route: 065
     Dates: start: 201904, end: 201905
  2. VINCRISTINE [Suspect]
     Active Substance: VINCRISTINE
     Indication: DIFFUSE LARGE B-CELL LYMPHOMA
     Dosage: UNK
     Route: 065
     Dates: start: 201910, end: 201910
  3. DEXAMETHASONE. [Suspect]
     Active Substance: DEXAMETHASONE
     Indication: DIFFUSE LARGE B-CELL LYMPHOMA
     Dosage: 2ND LINE THERAPY, ACCORDING TO DHOX-RITUXIMAB REGIMEN, 2 CYCLES
     Route: 065
     Dates: start: 201904, end: 201905
  4. CYCLOPHOSPHAMIDE. [Suspect]
     Active Substance: CYCLOPHOSPHAMIDE
     Indication: DIFFUSE LARGE B-CELL LYMPHOMA
     Dosage: 5TH  LINE THERAPY, ACCORDING TO R-CHOP REGIME
     Route: 065
     Dates: start: 201910, end: 201910
  5. DOXORUBICIN HYDROCHLORIDE. [Suspect]
     Active Substance: DOXORUBICIN HYDROCHLORIDE
     Indication: DIFFUSE LARGE B-CELL LYMPHOMA
     Dosage: 5TH LINE THERAPY, ACCORDING TO R-CHOP REGIMEN
     Route: 065
     Dates: start: 201910, end: 201910
  6. MABTHERA [Suspect]
     Active Substance: RITUXIMAB
     Indication: DIFFUSE LARGE B-CELL LYMPHOMA
     Dosage: 1ST LINE THERAPY, ACCORDING TO GM-ALL REGIMEN, 6 CYCLES + RITUXIMAB, 2 CYCLES
     Route: 065
     Dates: start: 201805, end: 201811
  7. PREDNISONE. [Suspect]
     Active Substance: PREDNISONE
     Indication: DIFFUSE LARGE B-CELL LYMPHOMA
     Route: 065
     Dates: start: 201910, end: 201910
  8. CYTARABINE. [Suspect]
     Active Substance: CYTARABINE
     Indication: DIFFUSE LARGE B-CELL LYMPHOMA
     Dosage: 2ND LINE THERAPY, ACCORDING TO DHOX-RITUXIMAB REGIMEN, 2 CYCLES
     Route: 065
     Dates: start: 201904, end: 201905
  9. MABTHERA [Suspect]
     Active Substance: RITUXIMAB
     Dosage: 2ND LINE THERAPY, ACCORDING TO DHOX-RITUXIMAB REGIMEN, 2 CYCLES
     Route: 065
     Dates: start: 201904, end: 201905
  10. MABTHERA [Suspect]
     Active Substance: RITUXIMAB
     Dosage: 5TH  LINE THERAPY, ACCORDING TO R-CHOP REGIME
     Route: 065
     Dates: start: 201910, end: 201910

REACTIONS (1)
  - Pancytopenia [Unknown]
